FAERS Safety Report 6899240-1 (Version None)
Quarter: 2010Q3

REPORT INFORMATION
  Report Type: 
  Country: None (occurrence: None)
  Receive Date: 20100802
  Receipt Date: 20080330
  Transmission Date: 20110219
  Serious: Yes (Other)
  Sender: FDA-Public Use
  Company Number: US-PFIZER INC-2007050695

PATIENT
  Sex: Male
  Weight: 96.2 kg

DRUGS (11)
  1. LYRICA [Suspect]
     Indication: NEURALGIA
     Dates: start: 20071001, end: 20071201
  2. LYRICA [Interacting]
     Indication: FIBROMYALGIA
  3. LYRICA [Interacting]
     Indication: PAIN IN EXTREMITY
  4. LUNESTA [Interacting]
     Indication: SLEEP DISORDER
  5. LIPITOR [Concomitant]
  6. ACETYLSALICYLIC ACID SRT [Concomitant]
  7. CIPROFLOXACIN [Concomitant]
  8. REGRANEX [Concomitant]
     Indication: MUSCLE CONTRACTIONS INVOLUNTARY
  9. OXYCODONE [Concomitant]
  10. THIAZIDES [Concomitant]
  11. CIPROFLOXACIN [Concomitant]

REACTIONS (7)
  - DRUG INTERACTION [None]
  - DRY MOUTH [None]
  - MYALGIA [None]
  - OEDEMA PERIPHERAL [None]
  - PAIN [None]
  - TENDERNESS [None]
  - WEIGHT INCREASED [None]
